FAERS Safety Report 4951192-7 (Version None)
Quarter: 2006Q1

REPORT INFORMATION
  Report Type: 
  Country: None (occurrence: None)
  Receive Date: 20060314
  Receipt Date: 20060303
  Transmission Date: 20060701
  Serious: Yes (Death, Hospitalization)
  Sender: FDA-Public Use
  Company Number: B0415039B

PATIENT
  Sex: Female

DRUGS (1)
  1. RETROVIR [Suspect]
     Indication: HIV INFECTION
     Dosage: 100 MG/TRANSPLAC
     Route: 064

REACTIONS (9)
  - BRONCHIOLITIS [None]
  - DRUG EXPOSURE DURING PREGNANCY [None]
  - HIV INFECTION [None]
  - IMMUNODEFICIENCY [None]
  - MATERNAL CONDITION AFFECTING FOETUS [None]
  - PREMATURE BABY [None]
  - RESPIRATORY SYNCYTIAL VIRUS INFECTION [None]
  - TREATMENT NONCOMPLIANCE [None]
  - VERTICAL INFECTION TRANSMISSION [None]
